FAERS Safety Report 23332758 (Version 1)
Quarter: 2023Q4

REPORT INFORMATION
  Report Type: Spontaneous
  Country: US (occurrence: US)
  Receive Date: 20231222
  Receipt Date: 20231222
  Transmission Date: 20240110
  Serious: No
  Sender: FDA-Public Use
  Company Number: US-PFIZER INC-202200727934

PATIENT
  Age: 76 Year
  Sex: Male
  Weight: 124.3 kg

DRUGS (5)
  1. RETACRIT [Suspect]
     Active Substance: EPOETIN ALFA-EPBX
     Indication: Anaemia of chronic disease
     Dosage: 8000 IU, WEEKLY
  2. RETACRIT [Suspect]
     Active Substance: EPOETIN ALFA-EPBX
     Indication: Chronic kidney disease
     Dosage: 8000 IU, MONTHLY
  3. RETACRIT [Suspect]
     Active Substance: EPOETIN ALFA-EPBX
     Dosage: 10000 IU (1 ML), EVERY 30 DAYS
     Route: 058
     Dates: start: 20230901
  4. VITAMIN B12 [Concomitant]
     Active Substance: CYANOCOBALAMIN
     Dosage: UNK, AS NEEDED
     Route: 048
  5. FOLIC ACID [Concomitant]
     Active Substance: FOLIC ACID
     Dosage: UNK, AS NEEDED

REACTIONS (11)
  - Red blood cell count decreased [Unknown]
  - Haemoglobin decreased [Unknown]
  - Haematocrit decreased [Unknown]
  - Mean cell volume increased [Unknown]
  - Lymphocyte percentage decreased [Unknown]
  - Monocyte percentage increased [Unknown]
  - Eosinophil percentage increased [Unknown]
  - White blood cell count decreased [Unknown]
  - Transferrin decreased [Unknown]
  - Serum ferritin increased [Unknown]
  - Blood pressure systolic increased [Unknown]
